FAERS Safety Report 5032285-5 (Version None)
Quarter: 2006Q2

REPORT INFORMATION
  Report Type: 
  Country: None (occurrence: None)
  Receive Date: 20060622
  Receipt Date: 20060619
  Transmission Date: 20061013
  Serious: Yes (Hospitalization)
  Sender: FDA-Public Use
  Company Number: FR-RB-3461-2006

PATIENT
  Age: 38 Year
  Sex: Male

DRUGS (1)
  1. BUPRENORPHINE HCL [Suspect]
     Indication: DRUG DEPENDENCE
     Route: 042
     Dates: start: 20060101

REACTIONS (4)
  - ABSCESS LIMB [None]
  - ENDOCARDITIS [None]
  - SEPTIC EMBOLUS [None]
  - STAPHYLOCOCCAL SEPSIS [None]
